FAERS Safety Report 19502333 (Version 1)
Quarter: 2021Q3

REPORT INFORMATION
  Report Type: Spontaneous
  Country: JP (occurrence: JP)
  Receive Date: 20210707
  Receipt Date: 20210707
  Transmission Date: 20211014
  Serious: Yes (Hospitalization)
  Sender: FDA-Public Use
  Company Number: JP-TAKEDA-2021TUS041882

PATIENT
  Age: 42 Year
  Sex: Male
  Weight: 85 kg

DRUGS (19)
  1. TALION [Concomitant]
     Indication: PRODUCT USED FOR UNKNOWN INDICATION
     Dosage: 20MG/DAY
     Route: 048
     Dates: start: 20181211, end: 20190902
  2. BIOFERMIN [Concomitant]
     Active Substance: DIETARY SUPPLEMENT\PROBIOTICS
     Dosage: 3 DOSAGE FORM, QD
     Route: 048
     Dates: start: 20190625, end: 20190629
  3. COLONEL [Concomitant]
     Active Substance: CALCIUM POLYCARBOPHIL
     Indication: COLITIS ULCERATIVE
     Dosage: UNK
     Route: 065
     Dates: start: 20181211, end: 20190401
  4. CRAVIT [Concomitant]
     Active Substance: LEVOFLOXACIN
     Dosage: OPTHALMIC
     Route: 065
     Dates: start: 20190619
  5. EPADEL [Suspect]
     Active Substance: ICOSAPENT
     Indication: PRODUCT USED FOR UNKNOWN INDICATION
     Dosage: 2700 MILLIGRAM, QD
     Route: 048
     Dates: start: 20181211
  6. FLUMETHOLON [Concomitant]
     Active Substance: FLUOROMETHOLONE
     Dosage: OPTHALMIC
     Route: 065
     Dates: start: 20190701, end: 20190805
  7. BRONUCK [Concomitant]
     Active Substance: BROMFENAC SODIUM
     Dosage: OPTHALMIC
     Route: 065
     Dates: start: 20190619
  8. PANVITAN [Concomitant]
     Active Substance: VITAMINS
     Indication: COLITIS ULCERATIVE
     Dosage: 2DF/12HOURS
     Route: 065
     Dates: start: 20181211, end: 20190304
  9. BIOFERMIN [Concomitant]
     Active Substance: DIETARY SUPPLEMENT\PROBIOTICS
     Dosage: 3 DOSAGE FORM, QD
     Route: 048
     Dates: start: 20190618, end: 20190621
  10. LOXONIN [Concomitant]
     Active Substance: LOXOPROFEN SODIUM
     Indication: PRODUCT USED FOR UNKNOWN INDICATION
     Dosage: 100MG/DAY
     Route: 065
     Dates: start: 20191218
  11. RINDERON [Concomitant]
     Dosage: OPTHALMIC
     Route: 065
     Dates: start: 20190619, end: 20190630
  12. VEGAMOX [Concomitant]
     Active Substance: MOXIFLOXACIN HYDROCHLORIDE
     Dosage: OPTHALMIC
     Route: 065
     Dates: start: 20190613, end: 20190618
  13. VEGAMOX [Concomitant]
     Active Substance: MOXIFLOXACIN HYDROCHLORIDE
     Dosage: OPTHALMIC
     Route: 065
     Dates: start: 20190620, end: 20190805
  14. FLOMOX [Concomitant]
     Dosage: 300 MILLIGRAM, QD
     Route: 048
     Dates: start: 20190625, end: 20190629
  15. PENTASA [Concomitant]
     Active Substance: MESALAMINE
     Dosage: 2 GRAM, QD
     Route: 048
     Dates: start: 20190220, end: 20190304
  16. PENTASA [Concomitant]
     Active Substance: MESALAMINE
     Dosage: 4 GRAM, BID
     Route: 048
     Dates: start: 20190305
  17. FLOMOX [Concomitant]
     Dosage: 300 MILLIGRAM, QD
     Route: 048
     Dates: start: 20190618, end: 20190621
  18. LIALDA [Suspect]
     Active Substance: MESALAMINE
     Indication: COLITIS ULCERATIVE
     Dosage: 4800 MILLIGRAM, QD
     Route: 048
     Dates: start: 20190206, end: 20190220
  19. PENTASA [Concomitant]
     Active Substance: MESALAMINE
     Indication: COLITIS ULCERATIVE
     Dosage: 2 GRAM, QD
     Route: 048
     Dates: start: 20160325, end: 20190205

REACTIONS (4)
  - Cataract operation [Recovered/Resolved]
  - Nasopharyngitis [Recovered/Resolved]
  - Drug ineffective [Unknown]
  - Urticaria [Recovered/Resolved]

NARRATIVE: CASE EVENT DATE: 20190618
